FAERS Safety Report 7092794-4 (Version None)
Quarter: 2010Q4

REPORT INFORMATION
  Report Type: 
  Country: None (occurrence: None)
  Receive Date: 20101110
  Receipt Date: 20101104
  Transmission Date: 20110411
  Serious: No
  Sender: FDA-Public Use
  Company Number: US-PFIZER INC-2010141034

PATIENT
  Sex: Male

DRUGS (2)
  1. TIKOSYN [Suspect]
     Indication: CARDIAC PACEMAKER INSERTION
     Dosage: UNK
     Dates: start: 20100101
  2. CARDIZEM [Concomitant]
     Dosage: UNK

REACTIONS (1)
  - VISION BLURRED [None]
